FAERS Safety Report 6891051-6 (Version None)
Quarter: 2010Q3

REPORT INFORMATION
  Report Type: 
  Country: None (occurrence: None)
  Receive Date: 20100731
  Receipt Date: 20090512
  Transmission Date: 20110219
  Serious: No
  Sender: FDA-Public Use
  Company Number: US-PFIZER INC-2009212727

PATIENT
  Sex: Male

DRUGS (7)
  1. LIPITOR [Suspect]
     Indication: BLOOD CHOLESTEROL INCREASED
     Dosage: 80 MG, 1X/DAY
     Dates: end: 20090401
  2. COZAAR [Concomitant]
  3. COREG [Concomitant]
  4. NITROGLYCERIN [Concomitant]
  5. ALTACE [Concomitant]
  6. PLAVIX [Concomitant]
  7. STARLIX [Concomitant]

REACTIONS (1)
  - MYALGIA [None]
